FAERS Safety Report 4415941-9 (Version None)
Quarter: 2004Q3

REPORT INFORMATION
  Report Type: 
  Country: None (occurrence: None)
  Receive Date: 20040805
  Receipt Date: 20040701
  Transmission Date: 20050211
  Serious: No
  Sender: FDA-Public Use
  Company Number: US-GLAXOSMITHKLINE-A0516745A

PATIENT
  Age: 72 Year
  Sex: Male

DRUGS (4)
  1. AVANDAMET [Suspect]
     Route: 048
  2. TENORMIN [Concomitant]
  3. HYDROCHLOROTHIAZIDE [Concomitant]
  4. LIPITOR [Concomitant]

REACTIONS (1)
  - DRUG INEFFECTIVE [None]
